FAERS Safety Report 11521011 (Version 1)
Quarter: 2015Q3

REPORT INFORMATION
  Report Type: Spontaneous
  Country: US (occurrence: US)
  Receive Date: 20150918
  Receipt Date: 20150918
  Transmission Date: 20151125
  Serious: No
  Sender: FDA-Public Use
  Company Number: US-ROCHE-705070

PATIENT
  Age: 38 Year
  Sex: Female
  Weight: 67.3 kg

DRUGS (10)
  1. KLONOPIN [Concomitant]
     Active Substance: CLONAZEPAM
     Dosage: AS NEEDED
     Route: 065
  2. CELEXA [Concomitant]
     Active Substance: CITALOPRAM HYDROBROMIDE
     Route: 065
  3. RISPERIDON [Concomitant]
     Active Substance: RISPERIDONE
     Dosage: DRUG RPTD: RISPERIDOL
     Route: 065
  4. VISTARIL [Concomitant]
     Active Substance: HYDROXYZINE PAMOATE
     Route: 065
  5. PRILOSEC [Concomitant]
     Active Substance: OMEPRAZOLE MAGNESIUM
     Route: 065
  6. DULCOLAX PRODUCT NOS [Concomitant]
     Route: 065
  7. PEGASYS [Suspect]
     Active Substance: PEGINTERFERON ALFA-2A
     Indication: HEPATITIS C
     Dosage: STRENGTH: 180MCG/0.5 ML
     Route: 058
  8. RIBAVIRIN. [Suspect]
     Active Substance: RIBAVIRIN
     Indication: HEPATITIS C
     Route: 048
  9. PHENERGAN [Concomitant]
     Active Substance: PROMETHAZINE HYDROCHLORIDE
     Route: 065
  10. ZANTAC [Concomitant]
     Active Substance: RANITIDINE HYDROCHLORIDE
     Route: 065

REACTIONS (15)
  - Pyrexia [Recovered/Resolved]
  - Pain in extremity [Not Recovered/Not Resolved]
  - Blood iron decreased [Unknown]
  - Red blood cell count decreased [Unknown]
  - Weight decreased [Unknown]
  - Influenza like illness [Unknown]
  - Lymphocyte count decreased [Unknown]
  - Oral candidiasis [Unknown]
  - Platelet count decreased [Unknown]
  - Oral herpes [Recovering/Resolving]
  - Fatigue [Unknown]
  - Decreased appetite [Unknown]
  - Pain in extremity [Unknown]
  - White blood cell count decreased [Unknown]
  - Dyspepsia [Unknown]

NARRATIVE: CASE EVENT DATE: 20100511
